FAERS Safety Report 14440751 (Version 3)
Quarter: 2018Q1

REPORT INFORMATION
  Report Type: Spontaneous
  Country: FR (occurrence: FR)
  Receive Date: 20180125
  Receipt Date: 20180330
  Transmission Date: 20180509
  Serious: Yes (Hospitalization)
  Sender: FDA-Public Use
  Company Number: FR-SA-2018SA016408

PATIENT
  Age: 60 Year
  Sex: Male
  Weight: 75 kg

DRUGS (11)
  1. DIFFU K [Concomitant]
     Active Substance: POTASSIUM CHLORIDE
  2. OFLOXACIN. [Concomitant]
     Active Substance: OFLOXACIN
     Route: 065
     Dates: end: 20171223
  3. TRAMADOL BASE [Concomitant]
     Active Substance: TRAMADOL
  4. GENTAMICIN. [Concomitant]
     Active Substance: GENTAMICIN
     Route: 065
     Dates: end: 20171223
  5. ORBENINE [Concomitant]
     Active Substance: CLOXACILLIN SODIUM
     Route: 065
     Dates: end: 20171223
  6. DROPERIDOL. [Concomitant]
     Active Substance: DROPERIDOL
  7. RIFAMPICIN [Suspect]
     Active Substance: RIFAMPIN
     Indication: ABSCESS
     Route: 042
     Dates: start: 20171217, end: 20171223
  8. CEFAZOLIN [Suspect]
     Active Substance: CEFAZOLIN
     Indication: ABSCESS
     Route: 042
     Dates: start: 20171223, end: 20171230
  9. NEFOPAM [Concomitant]
     Active Substance: NEFOPAM
  10. VANCOMYCIN [Concomitant]
     Active Substance: VANCOMYCIN
     Route: 065
     Dates: end: 20171223
  11. GABAPENTIN. [Concomitant]
     Active Substance: GABAPENTIN

REACTIONS (1)
  - Hypoprothrombinaemia [Recovering/Resolving]

NARRATIVE: CASE EVENT DATE: 20171230
